FAERS Safety Report 6614375-6 (Version None)
Quarter: 2010Q1

REPORT INFORMATION
  Report Type: 
  Country: None (occurrence: None)
  Receive Date: 20100303
  Receipt Date: 20100303
  Transmission Date: 20100710
  Serious: Yes (Hospitalization, Other)
  Sender: FDA-Public Use
  Company Number: None

PATIENT
  Sex: Female
  Weight: 81.6475 kg

DRUGS (1)
  1. YAZ [Suspect]
     Indication: MENSTRUATION IRREGULAR
     Dosage: ONCE A DAY PO
     Route: 048
     Dates: start: 20070211, end: 20080215

REACTIONS (8)
  - ABDOMINAL PAIN UPPER [None]
  - BACK PAIN [None]
  - CHOLECYSTECTOMY [None]
  - DEHYDRATION [None]
  - FOCAL NODULAR HYPERPLASIA [None]
  - HEPATIC MASS [None]
  - PAIN [None]
  - PANCREATITIS [None]
